FAERS Safety Report 24637981 (Version 5)
Quarter: 2025Q1

REPORT INFORMATION
  Report Type: Spontaneous
  Country: US (occurrence: US)
  Receive Date: 20241119
  Receipt Date: 20250303
  Transmission Date: 20250409
  Serious: No
  Sender: PFIZER
  Company Number: US-PFIZER INC-202400303457

PATIENT
  Age: 71 Year
  Sex: Female

DRUGS (2)
  1. IBRANCE [Suspect]
     Active Substance: PALBOCICLIB
     Indication: Breast cancer female
     Route: 048
  2. LETROZOLE [Concomitant]
     Active Substance: LETROZOLE

REACTIONS (8)
  - Nausea [Unknown]
  - Malaise [Unknown]
  - Discharge [Unknown]
  - Blister [Unknown]
  - Burning sensation [Unknown]
  - Product residue present [Unknown]
  - Anorectal disorder [Unknown]
  - Secretion discharge [Unknown]
